FAERS Safety Report 9300817 (Version 1)
Quarter: 2013Q2

REPORT INFORMATION
  Report Type: Spontaneous
  Country: GB (occurrence: GB)
  Receive Date: 20130521
  Receipt Date: 20130521
  Transmission Date: 20140414
  Serious: Yes (Other)
  Sender: FDA-Public Use
  Company Number: PHHY2013GB048996

PATIENT
  Sex: 0

DRUGS (13)
  1. CITALOPRAM [Suspect]
     Dosage: 40 MG, UNK
     Route: 048
  2. LANSOPRAZOLE [Suspect]
     Dosage: 30 MG, UNK
  3. MYCOPHENOLATE MOFETIL [Concomitant]
     Dosage: 1 G, BID
  4. PREDNISOLONE [Concomitant]
     Dosage: 20 MG, QD
  5. CETIRIZINE [Concomitant]
     Dosage: 10 MG, QD
  6. ASPIRIN [Concomitant]
     Dosage: 75 MG, QD
  7. MOVICOL [Concomitant]
     Route: 048
  8. DOXAZOSIN [Concomitant]
     Dosage: 2 MG, QD
  9. BISACODYL [Concomitant]
  10. MEBEVERINE [Concomitant]
     Dosage: 135 MG, TID
  11. PEPPERMINT OIL [Concomitant]
     Dosage: 1 DF, TID
  12. MINOCYCLINE [Concomitant]
     Dosage: 100 MG, QD
  13. SALBUTAMOL [Concomitant]
     Dosage: 100 UG, UNK
     Route: 055

REACTIONS (2)
  - Hyperprolactinaemia [Not Recovered/Not Resolved]
  - Gynaecomastia [Not Recovered/Not Resolved]
